FAERS Safety Report 7788192-8 (Version None)
Quarter: 2011Q3

REPORT INFORMATION
  Report Type: 
  Country: None (occurrence: None)
  Receive Date: 20110929
  Receipt Date: 20110929
  Transmission Date: 20111222
  Serious: Yes (Other)
  Sender: FDA-Public Use
  Company Number: None

PATIENT
  Age: 49 Year
  Sex: Male

DRUGS (1)
  1. LISTERINE TOTAL CARE ENAMEL GUARD (ORAL CARE PRODUCTS) LIQUID [Suspect]
     Indication: PRODUCT USED FOR UNKNOWN INDICATION
     Dosage: ORAL
     Route: 048
     Dates: start: 20110530

REACTIONS (5)
  - DYSPHAGIA [None]
  - ORAL DISCOMFORT [None]
  - GLOSSODYNIA [None]
  - SWOLLEN TONGUE [None]
  - OROPHARYNGEAL BLISTERING [None]
